FAERS Safety Report 9528504 (Version 1)
Quarter: 2013Q1

REPORT INFORMATION
  Report Type: Spontaneous
  Country: US (occurrence: None)
  Receive Date: 20130329
  Receipt Date: 20130329
  Transmission Date: 20140127
  Serious: No
  Sender: FDA-Public Use
  Company Number: 1000042937

PATIENT
  Age: 47 Year
  Sex: Female

DRUGS (6)
  1. LINZESS [Suspect]
     Indication: IRRITABLE BOWEL SYNDROME
     Route: 048
  2. LINZESS [Suspect]
     Indication: CONSTIPATION
     Route: 048
  3. LITHIUM CARBONATE (LITHIUM CARBONATE) [Concomitant]
  4. MVI (VITAMINS NOS)(VITAMINS NOS) [Concomitant]
  5. VITAMIN C (ASCORBIC ACID ) (ASCORBIC ACID) [Concomitant]
  6. CALCIUM (CALCIUM) (CALCIUM) [Concomitant]

REACTIONS (3)
  - Constipation [None]
  - Proctalgia [None]
  - Abdominal pain upper [None]
